FAERS Safety Report 10332651 (Version 1)
Quarter: 2014Q3

REPORT INFORMATION
  Report Type: Spontaneous
  Country: US (occurrence: US)
  Receive Date: 20140722
  Receipt Date: 20140722
  Transmission Date: 20150326
  Serious: No
  Sender: FDA-Public Use
  Company Number: US-ASTRAZENECA-2014SE09911

PATIENT
  Age: 21 Year
  Sex: Male

DRUGS (1)
  1. SEROQUEL [Suspect]
     Active Substance: QUETIAPINE FUMARATE
     Indication: HYPOMANIA
     Dosage: 200 MG EVERY 3-4 HOURS
     Route: 048

REACTIONS (3)
  - Constipation [Unknown]
  - Off label use [Unknown]
  - Lip dry [Unknown]

NARRATIVE: CASE EVENT DATE: 20140207
